FAERS Safety Report 24195327 (Version 1)
Quarter: 2024Q3

REPORT INFORMATION
  Report Type: Report from Study
  Country: PH (occurrence: PH)
  Receive Date: 20240809
  Receipt Date: 20240809
  Transmission Date: 20241017
  Serious: Yes (Death)
  Sender: OTSUKA
  Company Number: PH-OTSUKA-2024_021918

PATIENT
  Sex: Female

DRUGS (1)
  1. TOLVAPTAN [Suspect]
     Active Substance: TOLVAPTAN
     Indication: Ulcer haemorrhage
     Dosage: 1 DF, QD
     Route: 048

REACTIONS (2)
  - Hepatic cirrhosis [Fatal]
  - Product use in unapproved indication [Unknown]
